FAERS Safety Report 8801470 (Version 2)
Quarter: 2012Q4

REPORT INFORMATION
  Report Type: 
  Country: US (occurrence: US)
  Receive Date: 20120921
  Receipt Date: 20121122
  Transmission Date: 20130627
  Serious: Yes (Death, Other)
  Sender: FDA-Public Use
  Company Number: US-ROCHE-1129453

PATIENT
  Age: 48 Year
  Sex: Male

DRUGS (2)
  1. AVASTIN [Suspect]
     Indication: BRAIN NEOPLASM MALIGNANT
     Route: 042
     Dates: start: 20090804, end: 20090804
  2. AVASTIN [Suspect]
     Indication: GLIOBLASTOMA

REACTIONS (2)
  - Neoplasm progression [Fatal]
  - Cerebrovascular accident [Recovering/Resolving]
